FAERS Safety Report 4289913-1 (Version None)
Quarter: 2004Q1

REPORT INFORMATION
  Report Type: 
  Country: None (occurrence: None)
  Receive Date: 20040209
  Receipt Date: 20040122
  Transmission Date: 20041129
  Serious: Yes (Hospitalization, Other)
  Sender: FDA-Public Use
  Company Number: 173933

PATIENT
  Age: 41 Year
  Sex: Female
  Weight: 75.2971 kg

DRUGS (7)
  1. AVONEX [Suspect]
     Indication: MULTIPLE SCLEROSIS
     Dosage: 30 MCG QW IM
     Dates: start: 20020201, end: 20030501
  2. AVONEX [Suspect]
     Indication: MULTIPLE SCLEROSIS
     Dosage: 30 MCG QW IM
     Dates: start: 20030101
  3. CELEXA [Concomitant]
  4. PROVIGIL [Concomitant]
  5. FLONASE [Concomitant]
  6. CLARINEX [Concomitant]
  7. NAPROXEN [Concomitant]

REACTIONS (7)
  - ATRIAL BIGEMINY [None]
  - CHEST PAIN [None]
  - ELECTROCARDIOGRAM ABNORMAL [None]
  - HILAR LYMPHADENOPATHY [None]
  - MEDIASTINAL FIBROSIS [None]
  - SARCOIDOSIS [None]
  - VENTRICULAR EXTRASYSTOLES [None]
